FAERS Safety Report 25033637 (Version 1)
Quarter: 2025Q1

REPORT INFORMATION
  Report Type: Spontaneous
  Country: US (occurrence: US)
  Receive Date: 20250303
  Receipt Date: 20250303
  Transmission Date: 20250408
  Serious: No
  Sender: SANOFI AVENTIS
  Company Number: US-SA-2025SA061200

PATIENT
  Sex: Female
  Weight: 83.5 kg

DRUGS (11)
  1. DUPIXENT [Suspect]
     Active Substance: DUPILUMAB
     Indication: Asthma
     Dosage: 300 MG, QOW
     Route: 058
     Dates: start: 20210118
  2. VENLAFAXINE HCL [Concomitant]
     Active Substance: VENLAFAXINE HYDROCHLORIDE
  3. VYEPTI [Concomitant]
     Active Substance: EPTINEZUMAB-JJMR
  4. MEMANTINE [Concomitant]
     Active Substance: MEMANTINE
  5. BENADRYL [Concomitant]
     Active Substance: DIPHENHYDRAMINE HYDROCHLORIDE
  6. PROMETHAZINE HYDROCHLORIDE [Concomitant]
     Active Substance: PROMETHAZINE HYDROCHLORIDE
  7. BOTOX [Concomitant]
     Active Substance: ONABOTULINUMTOXINA
  8. UBRELVY [Concomitant]
     Active Substance: UBROGEPANT
  9. ZOLMITRIPTAN [Concomitant]
     Active Substance: ZOLMITRIPTAN
  10. COVID-19 vaccine [Concomitant]
  11. LAMOTRIGINE [Concomitant]
     Active Substance: LAMOTRIGINE

REACTIONS (2)
  - Pruritus [Recovering/Resolving]
  - Therapeutic response shortened [Recovering/Resolving]
